FAERS Safety Report 16206800 (Version 1)
Quarter: 2019Q2

REPORT INFORMATION
  Report Type: Spontaneous
  Country: US (occurrence: US)
  Receive Date: 20190417
  Receipt Date: 20190417
  Transmission Date: 20190711
  Serious: Yes (Life-Threatening, Hospitalization, Other)
  Sender: FDA-Public Use
  Company Number: US-SA-2019SA106276

PATIENT
  Age: 84 Year
  Sex: Female

DRUGS (2)
  1. ACETYLSALICYLIC ACID [Suspect]
     Active Substance: ASPIRIN
     Indication: ANTIPLATELET THERAPY
  2. PLAVIX [Suspect]
     Active Substance: CLOPIDOGREL BISULFATE
     Indication: ANTIPLATELET THERAPY

REACTIONS (6)
  - Treatment noncompliance [Unknown]
  - Abnormal faeces [Recovered/Resolved]
  - Dizziness [Unknown]
  - Gastric haemorrhage [Unknown]
  - Aortic stenosis [Unknown]
  - Heyde^s syndrome [Recovered/Resolved]
